FAERS Safety Report 10376460 (Version 1)
Quarter: 2014Q3

REPORT INFORMATION
  Report Type: Spontaneous
  Country: US (occurrence: US)
  Receive Date: 20140811
  Receipt Date: 20140811
  Transmission Date: 20150326
  Serious: Yes (Other)
  Sender: FDA-Public Use
  Company Number: US-PFIZER INC-2014220370

PATIENT
  Age: 62 Year
  Sex: Male
  Weight: 74.83 kg

DRUGS (3)
  1. CELEBREX [Suspect]
     Active Substance: CELECOXIB
     Indication: SCIATICA
  2. DIOVAN [Concomitant]
     Active Substance: VALSARTAN
     Indication: HYPERTENSION
     Dosage: 180 MG, DAILY AT BEDTIME
  3. CELEBREX [Suspect]
     Active Substance: CELECOXIB
     Indication: INTERVERTEBRAL DISC PROTRUSION
     Dosage: 200 MG, 1X/DAY EVERY MORNING
     Route: 048
     Dates: start: 201408, end: 201408

REACTIONS (6)
  - Anxiety [Unknown]
  - Off label use [Unknown]
  - Renal failure acute [Unknown]
  - Urinary retention [Recovering/Resolving]
  - Back pain [Unknown]
  - Renal disorder [Recovering/Resolving]

NARRATIVE: CASE EVENT DATE: 201408
